FAERS Safety Report 24795242 (Version 1)
Quarter: 2024Q4

REPORT INFORMATION
  Report Type: Spontaneous
  Country: FR (occurrence: FR)
  Receive Date: 20241231
  Receipt Date: 20241231
  Transmission Date: 20250115
  Serious: Yes (Other)
  Sender: MYLAN
  Company Number: None

PATIENT
  Age: 63 Year
  Sex: Male
  Weight: 72.8 kg

DRUGS (11)
  1. CLOZAPINE [Interacting]
     Active Substance: CLOZAPINE
     Indication: Schizophrenia
     Dosage: 350 MILLIGRAM, QD
     Route: 048
     Dates: start: 20241112
  2. CLOZAPINE [Interacting]
     Active Substance: CLOZAPINE
     Dosage: 375 MILLIGRAM, QD (200-0-175MG)
     Route: 048
     Dates: start: 20240911, end: 20241112
  3. CLOZAPINE [Interacting]
     Active Substance: CLOZAPINE
     Dosage: 425 MILLIGRAM, QD
     Route: 048
     Dates: start: 202404, end: 20240911
  4. CLOZAPINE [Interacting]
     Active Substance: CLOZAPINE
     Dosage: 450 MILLIGRAM, QD
     Route: 048
     Dates: start: 202403, end: 202404
  5. CLOZAPINE [Interacting]
     Active Substance: CLOZAPINE
     Dosage: 475 MILLIGRAM, QD
     Route: 048
     Dates: start: 2012, end: 202403
  6. MIRABEGRON [Interacting]
     Active Substance: MIRABEGRON
     Indication: Hypertonic bladder
     Dosage: 50 MILLIGRAM, QD (1-0-0)
     Route: 048
     Dates: start: 20230823
  7. PAROXETINE HYDROCHLORIDE [Concomitant]
     Active Substance: PAROXETINE HYDROCHLORIDE
     Indication: Schizophrenia
     Dosage: 20 MILLIGRAM, QD (1-0-0)
     Route: 048
  8. PRAZEPAM [Concomitant]
     Active Substance: PRAZEPAM
     Indication: Schizophrenia
     Dosage: 15 MILLIGRAM, QD (0.5-0-1 TAB)
     Route: 048
  9. KARDEGIC [Concomitant]
     Active Substance: ASPIRIN DL-LYSINE
     Indication: Cerebrovascular accident
     Dosage: 75 MILLIGRAM, QD (1-0-0)
     Route: 048
  10. RAMIPRIL [Concomitant]
     Active Substance: RAMIPRIL
     Indication: Hypertension
     Dosage: 5 MILLIGRAM, QD (1-0-0)
     Route: 048
  11. NICOPASS MINT [Concomitant]
     Indication: Tobacco withdrawal symptoms
     Dosage: 37.5 MILLIGRAM, QD (15 TABLET PER DAY)
     Route: 048

REACTIONS (3)
  - Fall [Recovering/Resolving]
  - Somnolence [Recovered/Resolved]
  - Drug interaction [Not Recovered/Not Resolved]

NARRATIVE: CASE EVENT DATE: 20230826
